FAERS Safety Report 14505521 (Version 2)
Quarter: 2018Q2

REPORT INFORMATION
  Report Type: Spontaneous
  Country: GB (occurrence: GR)
  Receive Date: 20180208
  Receipt Date: 20180409
  Transmission Date: 20180711
  Serious: Yes (Hospitalization)
  Sender: FDA-Public Use
  Company Number: GB-SA-2018SA030505

PATIENT
  Age: 69 Year
  Sex: Female

DRUGS (5)
  1. CLOPIDOGREL BISULFATE. [Suspect]
     Active Substance: CLOPIDOGREL BISULFATE
     Indication: ATRIAL FIBRILLATION
     Route: 065
  2. ACETYLSALICYLIC ACID/CLOPIDOGREL BISULFATE [Concomitant]
  3. ATORVASTATIN [Suspect]
     Active Substance: ATORVASTATIN
     Route: 065
  4. METOPROLOL. [Suspect]
     Active Substance: METOPROLOL
     Route: 065
  5. ENOXAPARIN SODIUM. [Suspect]
     Active Substance: ENOXAPARIN SODIUM
     Indication: ANTICOAGULANT THERAPY
     Route: 065

REACTIONS (5)
  - Acute myocardial infarction [Recovered/Resolved]
  - Chest pain [Recovered/Resolved]
  - Drug ineffective [Unknown]
  - Coronary artery embolism [Recovered/Resolved]
  - Atrial fibrillation [Recovered/Resolved]
